FAERS Safety Report 16015023 (Version 1)
Quarter: 2019Q1

REPORT INFORMATION
  Report Type: Spontaneous
  Country: US (occurrence: US)
  Receive Date: 20190227
  Receipt Date: 20190227
  Transmission Date: 20190418
  Serious: No
  Sender: FDA-Public Use
  Company Number: US-TEVA-2019-US-1006667

PATIENT
  Sex: Female
  Weight: 155 kg

DRUGS (1)
  1. TRIAMTERENE/HYDROCHLOROTHIAZIDE [Suspect]
     Active Substance: HYDROCHLOROTHIAZIDE\TRIAMTERENE
     Indication: POLYURIA
     Dosage: TRIAMTERENE 37.5 MG+ HYDROCHLOROTHIAZIDE 25 MG
     Route: 048
     Dates: start: 201901, end: 201901

REACTIONS (2)
  - Drug ineffective [Unknown]
  - Joint swelling [Recovering/Resolving]
